FAERS Safety Report 4331381-5 (Version None)
Quarter: 2004Q1

REPORT INFORMATION
  Report Type: 
  Country: None (occurrence: None)
  Receive Date: 20040329
  Receipt Date: 20040316
  Transmission Date: 20041129
  Serious: Yes (Hospitalization, Other)
  Sender: FDA-Public Use
  Company Number: 2004018063

PATIENT
  Age: 73 Year
  Sex: Female
  Weight: 86.637 kg

DRUGS (1)
  1. TIKOSYN [Suspect]
     Indication: ILL-DEFINED DISORDER
     Dosage: 250 MCG (BID), ORAL
     Route: 048

REACTIONS (1)
  - CELLULITIS [None]
